FAERS Safety Report 4595088-1 (Version None)
Quarter: 2005Q1

REPORT INFORMATION
  Report Type: 
  Country: None (occurrence: None)
  Receive Date: 20050301
  Receipt Date: 20041019
  Transmission Date: 20050727
  Serious: Yes (Other)
  Sender: FDA-Public Use
  Company Number: US-MERCK-0410USA02895

PATIENT
  Age: 38 Year
  Sex: Male
  Weight: 86 kg

DRUGS (6)
  1. VIOXX [Suspect]
     Indication: ARTHRALGIA
     Route: 048
     Dates: start: 20000727, end: 20000828
  2. TRAZODONE HYDROCHLORIDE [Concomitant]
     Route: 065
  3. IBUPROFEN [Concomitant]
     Indication: ARTHRITIS
     Route: 048
     Dates: start: 19970912, end: 20001025
  4. PAXIL [Concomitant]
     Indication: DEPRESSION
     Route: 048
     Dates: start: 20000418, end: 20001122
  5. XANAX [Concomitant]
     Indication: ANXIETY
     Route: 048
     Dates: start: 19991126, end: 20001205
  6. ALBUTEROL [Concomitant]
     Indication: BRONCHITIS
     Route: 055
     Dates: start: 20000620, end: 20040727

REACTIONS (4)
  - CHEST PAIN [None]
  - GASTRIC INFECTION [None]
  - MYOCARDIAL INFARCTION [None]
  - SKIN DISCOLOURATION [None]
